FAERS Safety Report 25013557 (Version 1)
Quarter: 2025Q1

REPORT INFORMATION
  Report Type: Spontaneous
  Country: US (occurrence: US)
  Receive Date: 20250226
  Receipt Date: 20250226
  Transmission Date: 20250408
  Serious: No
  Sender: MILLICENT HOLDINGS
  Company Number: US-Millicent Holdings Ltd.-MILL20250069

PATIENT
  Age: 66 Year
  Sex: Female

DRUGS (1)
  1. FEMRING [Suspect]
     Active Substance: ESTRADIOL ACETATE
     Indication: Menopausal symptoms
     Route: 067

REACTIONS (4)
  - Vaginal haemorrhage [Not Recovered/Not Resolved]
  - Wrong dose [Unknown]
  - Inappropriate schedule of product administration [None]
  - Product use issue [Unknown]

NARRATIVE: CASE EVENT DATE: 20240101
